FAERS Safety Report 19563568 (Version 2)
Quarter: 2021Q3

REPORT INFORMATION
  Report Type: Spontaneous
  Country: CA (occurrence: CA)
  Receive Date: 20210715
  Receipt Date: 20210913
  Transmission Date: 20211014
  Serious: Yes (Death, Other)
  Sender: FDA-Public Use
  Company Number: CA-PFIZER INC-2021854066

PATIENT
  Age: 52 Year

DRUGS (2)
  1. BRAFTOVI [Suspect]
     Active Substance: ENCORAFENIB
     Dosage: UNK
  2. MEKTOVI [Suspect]
     Active Substance: BINIMETINIB
     Dosage: UNK

REACTIONS (1)
  - Death [Fatal]
